FAERS Safety Report 18860625 (Version 1)
Quarter: 2021Q1

REPORT INFORMATION
  Report Type: Spontaneous
  Country: US (occurrence: US)
  Receive Date: 20210208
  Receipt Date: 20210208
  Transmission Date: 20210420
  Serious: Yes (Death, Other)
  Sender: FDA-Public Use
  Company Number: US-SA-2021SA038431

PATIENT
  Age: 92 Year
  Sex: Female

DRUGS (1)
  1. ZANTAC [Suspect]
     Active Substance: RANITIDINE HYDROCHLORIDE
     Dosage: UNKNOWN AT THIS TIME
     Dates: start: 199501, end: 201801

REACTIONS (2)
  - Neoplasm malignant [Unknown]
  - Gastric cancer [Fatal]

NARRATIVE: CASE EVENT DATE: 20190910
